FAERS Safety Report 15859593 (Version 2)
Quarter: 2019Q1

REPORT INFORMATION
  Report Type: Spontaneous
  Country: DE (occurrence: DE)
  Receive Date: 20190123
  Receipt Date: 20190312
  Transmission Date: 20190417
  Serious: Yes (Hospitalization)
  Sender: FDA-Public Use
  Company Number: DE-MYLANLABS-MK-6033440

PATIENT
  Age: 74 Year
  Sex: Male

DRUGS (12)
  1. LIOTHYRONINE [Concomitant]
     Active Substance: LIOTHYRONINE
     Indication: PRODUCT USED FOR UNKNOWN INDICATION
     Dosage: UNK
  2. CARBAMAZEPINE. [Suspect]
     Active Substance: CARBAMAZEPINE
     Indication: DEPRESSION
  3. SERTRALINE [Suspect]
     Active Substance: SERTRALINE HYDROCHLORIDE
     Indication: MAJOR DEPRESSION
     Dosage: UNK (HIGH DOSE)
  4. LORAZEPAM. [Concomitant]
     Active Substance: LORAZEPAM
     Dosage: 0.5 MILLIGRAM, QD
  5. CARBAMAZEPINE. [Suspect]
     Active Substance: CARBAMAZEPINE
     Indication: BIPOLAR I DISORDER
     Dosage: 600 MILLIGRAM, QD
     Route: 048
  6. TRIIODOTHYRONINE [Suspect]
     Active Substance: LIOTHYRONINE SODIUM
     Indication: HYPOTHYROIDISM
     Dosage: 75 MILLIGRAM, QD
     Route: 048
  7. CLOMIPRAMINE [Suspect]
     Active Substance: CLOMIPRAMINE
     Indication: MAJOR DEPRESSION
     Dosage: UNK
  8. LORAZEPAM. [Concomitant]
     Active Substance: LORAZEPAM
     Indication: DEPRESSION
     Dosage: UNK
  9. MIRTAZAPINE. [Suspect]
     Active Substance: MIRTAZAPINE
     Indication: MAJOR DEPRESSION
     Dosage: UNK (HIGH DOSE)
  10. CLOMIPRAMINE [Suspect]
     Active Substance: CLOMIPRAMINE
     Dosage: 175 MILLIGRAM, QD
     Route: 048
  11. VENLAFAXINE [Suspect]
     Active Substance: VENLAFAXINE HYDROCHLORIDE
     Indication: MAJOR DEPRESSION
     Dosage: HIGH-DOSE TREATMENT
  12. FOKALEPSIN [Suspect]
     Active Substance: CARBAMAZEPINE
     Indication: DEPRESSION
     Dosage: 600 MILLIGRAM, QD
     Route: 048

REACTIONS (20)
  - Psychomotor hyperactivity [Recovered/Resolved]
  - Delusion [Recovered/Resolved]
  - Loose associations [Recovered/Resolved]
  - Drug withdrawal syndrome [Recovered/Resolved]
  - Insomnia [Recovered/Resolved]
  - Depression [Recovered/Resolved]
  - Speech disorder [Recovered/Resolved]
  - Pressure of speech [Recovered/Resolved]
  - Incoherent [Recovered/Resolved]
  - Bipolar disorder [Recovered/Resolved]
  - Mania [Recovered/Resolved]
  - Rebound effect [Recovered/Resolved]
  - Asthenia [Unknown]
  - Anhedonia [Unknown]
  - Mood altered [Recovered/Resolved]
  - Major depression [Unknown]
  - Psychomotor retardation [Unknown]
  - Liver function test abnormal [Unknown]
  - Feelings of worthlessness [Unknown]
  - Drug ineffective [Recovered/Resolved]
